FAERS Safety Report 6269125-2 (Version None)
Quarter: 2009Q3

REPORT INFORMATION
  Report Type: 
  Country: None (occurrence: None)
  Receive Date: 20090715
  Receipt Date: 20090122
  Transmission Date: 20100115
  Serious: No
  Sender: FDA-Public Use
  Company Number: US-BRISTOL-MYERS SQUIBB COMPANY-14480750

PATIENT
  Sex: Female

DRUGS (1)
  1. BLEOMYCIN SULFATE [Suspect]

REACTIONS (1)
  - PYREXIA [None]
